FAERS Safety Report 5458014-9 (Version None)
Quarter: 2007Q3

REPORT INFORMATION
  Report Type: 
  Country: None (occurrence: None)
  Receive Date: 20070917
  Receipt Date: 20070906
  Transmission Date: 20080115
  Serious: Yes (Other)
  Sender: FDA-Public Use
  Company Number: CHNY2007AU03066

PATIENT
  Sex: Male

DRUGS (2)
  1. NICOTINE [Suspect]
     Indication: SMOKING CESSATION THERAPY
     Dosage: 21 MG, TRANSDERMAL; 14 MG, TRANSDERMAL
     Route: 062
     Dates: end: 20070820
  2. NICOTINE [Suspect]
     Indication: SMOKING CESSATION THERAPY
     Dosage: 21 MG, TRANSDERMAL; 14 MG, TRANSDERMAL
     Route: 062
     Dates: start: 20070806

REACTIONS (8)
  - AGITATION [None]
  - ALTERED VISUAL DEPTH PERCEPTION [None]
  - AMNESIA [None]
  - CONFUSIONAL STATE [None]
  - DEPRESSED MOOD [None]
  - DISORIENTATION [None]
  - HALLUCINATION, VISUAL [None]
  - THINKING ABNORMAL [None]
